FAERS Safety Report 14424480 (Version 2)
Quarter: 2018Q4

REPORT INFORMATION
  Report Type: Spontaneous
  Country: US (occurrence: US)
  Receive Date: 20180123
  Receipt Date: 20181213
  Transmission Date: 20190204
  Serious: Yes (Other)
  Sender: FDA-Public Use
  Company Number: US-MYLANLABS-2018M1004439

PATIENT
  Age: 30 Year
  Sex: Female
  Weight: 56 kg

DRUGS (7)
  1. KETAMINE [Suspect]
     Active Substance: KETAMINE
     Dosage: DOSE:25 MG/H (0.45 MG/KG/H)
     Route: 050
  2. DULOXETINE. [Concomitant]
     Active Substance: DULOXETINE
     Indication: PRODUCT USED FOR UNKNOWN INDICATION
     Dosage: UNK
     Route: 065
  3. KETAMINE [Suspect]
     Active Substance: KETAMINE
     Dosage: DOSE:15 MG/H
     Route: 050
  4. KETAMINE [Suspect]
     Active Substance: KETAMINE
     Indication: COMPLEX REGIONAL PAIN SYNDROME
     Dosage: DOSE:10 MG/H (0.18 MG/KG/H)
     Route: 050
  5. KETAMINE [Suspect]
     Active Substance: KETAMINE
     Dosage: DOSE:20 MG/H
     Route: 050
  6. BUPRENORPHINE AND NALOXONE [Concomitant]
     Active Substance: BUPRENORPHINE\NALOXONE
     Indication: DRUG USE DISORDER
     Dosage: UNK
     Route: 065
  7. HYDROXYZINE [Concomitant]
     Active Substance: HYDROXYZINE HYDROCHLORIDE
     Indication: ANXIETY
     Dosage: UNK
     Route: 065

REACTIONS (3)
  - Mania [Recovered/Resolved]
  - Bipolar disorder [Recovered/Resolved]
  - Unmasking of previously unidentified disease [Recovered/Resolved]
